FAERS Safety Report 4498313-0 (Version None)
Quarter: 2004Q4

REPORT INFORMATION
  Report Type: 
  Country: None (occurrence: None)
  Receive Date: 20041109
  Receipt Date: 20041109
  Transmission Date: 20050328
  Serious: Yes (Hospitalization)
  Sender: FDA-Public Use
  Company Number: None

PATIENT
  Sex: Male

DRUGS (3)
  1. NAPROXEN (RX) [Suspect]
     Indication: ARTHRITIS
     Dosage: 500 MG Q AM
  2. IBUPROFEN [Suspect]
     Dosage: 400 MG @ HS
  3. ASPIRIN [Concomitant]

REACTIONS (1)
  - GASTROINTESTINAL HAEMORRHAGE [None]
